FAERS Safety Report 8958860 (Version 1)
Quarter: 2012Q4

REPORT INFORMATION
  Report Type: 
  Country: IE (occurrence: US)
  Receive Date: 20121212
  Receipt Date: 20121212
  Transmission Date: 20130627
  Serious: Yes (Death)
  Sender: FDA-Public Use
  Company Number: IE-MYLANLABS-2012S1025068

PATIENT
  Age: 55 Year
  Sex: Female

DRUGS (3)
  1. RITUXIMAB [Suspect]
     Indication: VASCULITIS
     Dosage: Infusion
     Route: 050
  2. AZATHIOPRINE [Suspect]
     Indication: VASCULITIS
     Route: 065
  3. CYCLOPHOSPHAMIDE [Suspect]
     Indication: VASCULITIS
     Route: 042

REACTIONS (1)
  - Progressive multifocal leukoencephalopathy [Fatal]
